FAERS Safety Report 14804759 (Version 1)
Quarter: 2018Q2

REPORT INFORMATION
  Report Type: Report from Study
  Country: BR (occurrence: BR)
  Receive Date: 20180425
  Receipt Date: 20180425
  Transmission Date: 20180711
  Serious: Yes (Hospitalization, Other)
  Sender: FDA-Public Use
  Company Number: BR-BAYER-2017-229114

PATIENT
  Age: 79 Year
  Sex: Female

DRUGS (7)
  1. STIVARGA [Suspect]
     Active Substance: REGORAFENIB
     Indication: HEPATIC CANCER METASTATIC
     Dosage: 160 MG, QD
     Route: 048
     Dates: start: 20170926
  2. STIVARGA [Suspect]
     Active Substance: REGORAFENIB
     Indication: METASTASES TO LUNG
     Dosage: 120 MG, QD
     Dates: start: 20180104, end: 201804
  3. OMEGA 3 [Concomitant]
     Active Substance: OMEGA-3 FATTY ACIDS
     Dosage: 1 DF, OM
     Route: 048
  4. STIVARGA [Suspect]
     Active Substance: REGORAFENIB
     Indication: INTESTINAL METASTASIS
     Dosage: 120 MG, QD
     Dates: start: 20171208
  5. DIPIRONA [Concomitant]
     Active Substance: METAMIZOLE
     Indication: HEADACHE
  6. DIPIRONA [Concomitant]
     Active Substance: METAMIZOLE
     Indication: PAIN
     Dosage: 1 DF, UNK
  7. OMEPRAZOLE. [Concomitant]
     Active Substance: OMEPRAZOLE
     Dosage: 1 DF, UNK

REACTIONS (34)
  - Hepatic cancer metastatic [None]
  - Abdominal pain upper [Not Recovered/Not Resolved]
  - Deafness [Recovered/Resolved]
  - Weight decreased [Recovered/Resolved]
  - Back pain [Not Recovered/Not Resolved]
  - Anxiety [None]
  - Nausea [Recovered/Resolved]
  - Wheelchair user [None]
  - Loss of consciousness [Recovered/Resolved]
  - Blindness [Recovered/Resolved]
  - Diarrhoea [Recovered/Resolved]
  - Drug hypersensitivity [None]
  - Haematochezia [Recovering/Resolving]
  - Gait inability [Recovered/Resolved]
  - Mood altered [Not Recovered/Not Resolved]
  - Muscle spasms [Not Recovered/Not Resolved]
  - Off label use [None]
  - Hunger [Recovered/Resolved]
  - Hepatic cancer metastatic [None]
  - Metastases to lung [None]
  - Herpes zoster [Recovered/Resolved]
  - Chest pain [Recovered/Resolved]
  - Decreased appetite [Recovered/Resolved]
  - Pain [Not Recovered/Not Resolved]
  - Hepatic pain [None]
  - Headache [Recovering/Resolving]
  - Dyspnoea [Recovered/Resolved]
  - Asthenia [Recovered/Resolved]
  - Dysphonia [Recovered/Resolved]
  - Bed rest [None]
  - Skin lesion [Recovered/Resolved]
  - Hypoaesthesia [Not Recovered/Not Resolved]
  - Dysphagia [Recovered/Resolved]
  - Product use in unapproved indication [None]

NARRATIVE: CASE EVENT DATE: 201709
